FAERS Safety Report 24141664 (Version 2)
Quarter: 2024Q3

REPORT INFORMATION
  Report Type: Spontaneous
  Country: US (occurrence: US)
  Receive Date: 20240726
  Receipt Date: 20240910
  Transmission Date: 20241016
  Serious: No
  Sender: GRANULES INDIA
  Company Number: US-GRANULES-US-2024GRASPO00288

PATIENT

DRUGS (1)
  1. DEXTROAMPHET SACCHARAT, AMPHET ASPARTATE, DEXTROAMPHET SULFATE AND AMP [Suspect]
     Active Substance: AMPHETAMINE ASPARTATE\AMPHETAMINE SULFATE\DEXTROAMPHETAMINE SACCHARATE\DEXTROAMPHETAMINE SULFATE
     Indication: Product used for unknown indication
     Route: 065

REACTIONS (11)
  - Hyperhidrosis [Recovered/Resolved]
  - Anhedonia [Recovered/Resolved]
  - Brain fog [Recovered/Resolved]
  - Dysaesthesia [Recovered/Resolved]
  - Tachycardia [Recovered/Resolved]
  - Heart rate irregular [Unknown]
  - Anxiety [Not Recovered/Not Resolved]
  - Amnesia [Recovered/Resolved]
  - Muscle tightness [Recovered/Resolved]
  - Pain [Recovered/Resolved]
  - Drug ineffective [Unknown]
